FAERS Safety Report 22069357 (Version 2)
Quarter: 2024Q1

REPORT INFORMATION
  Report Type: Spontaneous
  Country: US (occurrence: US)
  Receive Date: 20230307
  Receipt Date: 20240221
  Transmission Date: 20240410
  Serious: No
  Sender: FDA-Public Use
  Company Number: US-PHARMING-PHAUS2023000162

PATIENT

DRUGS (2)
  1. RUCONEST [Suspect]
     Active Substance: CONESTAT ALFA
     Indication: Hereditary angioedema
     Dosage: 2600 IU, AS NEEDED
     Route: 042
     Dates: start: 20220928
  2. RUCONEST [Suspect]
     Active Substance: CONESTAT ALFA
     Dosage: UNK
     Route: 042
     Dates: end: 202304

REACTIONS (11)
  - Disorientation [Unknown]
  - Feeling abnormal [Unknown]
  - Blood pressure increased [Unknown]
  - Heart rate increased [Unknown]
  - Incorrect dose administered [Unknown]
  - Nervous system disorder [Unknown]
  - Body temperature increased [Unknown]
  - Pruritus [Unknown]
  - Dyspnoea [Unknown]
  - Dizziness [Unknown]
  - Urticaria [Unknown]

NARRATIVE: CASE EVENT DATE: 20230228
